FAERS Safety Report 25047435 (Version 1)
Quarter: 2025Q1

REPORT INFORMATION
  Report Type: Spontaneous
  Country: FR (occurrence: FR)
  Receive Date: 20250306
  Receipt Date: 20250306
  Transmission Date: 20250409
  Serious: Yes (Other)
  Sender: PFIZER
  Company Number: None

PATIENT
  Age: 68 Year
  Sex: Male
  Weight: 77 kg

DRUGS (3)
  1. PEMETREXED [Suspect]
     Active Substance: PEMETREXED
     Indication: Non-small cell lung cancer
     Dosage: 950 MG, 1X/DAY (ALSO REPORTED AS 500 MG/M2)
     Route: 042
     Dates: start: 20241028, end: 20241028
  2. CARBOPLATIN [Suspect]
     Active Substance: CARBOPLATIN
     Indication: Non-small cell lung cancer
     Dosage: 560 MG, 1X/DAY (AUC 5)
     Route: 042
     Dates: start: 20241028, end: 20241028
  3. AMIVANTAMAB [Suspect]
     Active Substance: AMIVANTAMAB
     Indication: Non-small cell lung cancer
     Dosage: 350 MG, 1X/DAY (ALSO REPORTED AS 350 MG/7ML)
     Route: 042
     Dates: start: 20241028, end: 20241028

REACTIONS (4)
  - Erythema [Recovered/Resolved]
  - Palmar erythema [Recovered/Resolved]
  - Bronchospasm [Recovered/Resolved]
  - Off label use [Unknown]

NARRATIVE: CASE EVENT DATE: 20241028
